FAERS Safety Report 8319692-X (Version None)
Quarter: 2012Q2

REPORT INFORMATION
  Report Type: 
  Country: None (occurrence: None)
  Receive Date: 20120427
  Receipt Date: 20120419
  Transmission Date: 20120825
  Serious: Yes (Life-Threatening, Hospitalization)
  Sender: FDA-Public Use
  Company Number: DE-TEVA-334425GER

PATIENT
  Age: 48 Year
  Sex: Male
  Weight: 82 kg

DRUGS (4)
  1. NOVALGIN [Suspect]
     Indication: AMPUTATION STUMP PAIN
     Dosage: 4 GRAM;
     Route: 048
     Dates: start: 20110921, end: 20111103
  2. AMITRIPTYLINE HCL [Suspect]
     Indication: AMPUTATION STUMP PAIN
     Dosage: 75 MILLIGRAM;
     Route: 048
     Dates: start: 20111015, end: 20111104
  3. OXYCODONE HYDROCHLORIDE [Suspect]
     Indication: AMPUTATION STUMP PAIN
     Dosage: 20 MILLIGRAM;
     Route: 048
     Dates: start: 20111015, end: 20111104
  4. IBUPROFEN [Suspect]
     Indication: AMPUTATION STUMP PAIN
     Dosage: 1800 MILLIGRAM;
     Route: 048
     Dates: start: 20110921, end: 20111104

REACTIONS (1)
  - AGRANULOCYTOSIS [None]
